FAERS Safety Report 6282750-8 (Version None)
Quarter: 2009Q3

REPORT INFORMATION
  Report Type: 
  Country: None (occurrence: None)
  Receive Date: 20090724
  Receipt Date: 20090715
  Transmission Date: 20100115
  Serious: Yes (Congenital Anomaly)
  Sender: FDA-Public Use
  Company Number: AU-JNJFOC-20090705216

PATIENT
  Sex: Female
  Weight: 2.68 kg

DRUGS (5)
  1. TOPIRAMATE [Suspect]
     Indication: DRUG EXPOSURE VIA BREAST MILK
  2. CARBAMAZEPINE [Suspect]
  3. CARBAMAZEPINE [Suspect]
     Indication: DRUG EXPOSURE VIA BREAST MILK
  4. FOLIC ACID [Concomitant]
     Indication: DRUG EXPOSURE VIA BREAST MILK
  5. ASPIRIN [Concomitant]
     Indication: DRUG EXPOSURE VIA BREAST MILK

REACTIONS (2)
  - DRUG EXPOSURE VIA BREAST MILK [None]
  - KIDNEY DUPLEX [None]
